FAERS Safety Report 5070634-2 (Version None)
Quarter: 2006Q3

REPORT INFORMATION
  Report Type: 
  Country: None (occurrence: None)
  Receive Date: 20060804
  Receipt Date: 20050809
  Transmission Date: 20061208
  Serious: No
  Sender: FDA-Public Use
  Company Number: US-GLAXOSMITHKLINE-A0569467A

PATIENT
  Age: 38 Year
  Sex: Female

DRUGS (3)
  1. NICORETTE (MINT) [Suspect]
  2. COMMIT [Suspect]
  3. NICODERM CQ [Suspect]

REACTIONS (7)
  - APPLICATION SITE ERYTHEMA [None]
  - APPLICATION SITE IRRITATION [None]
  - APPLICATION SITE PAIN [None]
  - CRYING [None]
  - MALAISE [None]
  - NAUSEA [None]
  - ORAL DISCOMFORT [None]
